FAERS Safety Report 6523364-1 (Version None)
Quarter: 2009Q4

REPORT INFORMATION
  Report Type: 
  Country: None (occurrence: None)
  Receive Date: 20091231
  Receipt Date: 20091222
  Transmission Date: 20100525
  Serious: Yes (Other)
  Sender: FDA-Public Use
  Company Number: JP-BRISTOL-MYERS SQUIBB COMPANY-14775522

PATIENT
  Age: 72 Year
  Sex: Female
  Weight: 47 kg

DRUGS (10)
  1. ERBITUX [Suspect]
     Indication: COLON CANCER
     Dosage: 18AUG09- 250MG/M2 250MG/M2:04AUG09 - 15SEP09.
     Route: 041
     Dates: start: 20090728, end: 20090915
  2. IRINOTECAN HCL [Suspect]
     Indication: COLON CANCER
     Dosage: 18AUG-1SEP09: 1 IN 2 ONCE 28JUL-04AUG09. 18AUG-01SEP09-ONGOING
     Route: 041
     Dates: start: 20090728, end: 20090901
  3. DIPHENHYDRAMINE HCL [Concomitant]
     Indication: PREMEDICATION
     Route: 048
     Dates: start: 20090728, end: 20090915
  4. DEXAMETHASONE SODIUM PHOSPHATE [Concomitant]
     Indication: PREMEDICATION
     Route: 042
     Dates: start: 20090728, end: 20090915
  5. LENOGRASTIM [Concomitant]
     Route: 058
     Dates: start: 20090811, end: 20090811
  6. GRANISETRON HCL [Concomitant]
     Indication: ANTIEMETIC SUPPORTIVE CARE
     Dates: start: 20080728, end: 20090915
  7. AMLODIPINE BESYLATE [Concomitant]
     Dosage: TABLET
     Route: 048
     Dates: start: 20080416, end: 20090915
  8. CETIRIZINE HCL [Concomitant]
     Dosage: TABS
     Route: 048
     Dates: start: 20090728, end: 20090915
  9. ETIZOLAM [Concomitant]
     Dosage: TABS
     Route: 048
     Dates: start: 20080416, end: 20090915
  10. MAGNESIUM OXIDE [Concomitant]
     Dosage: TABLET
     Route: 048
     Dates: start: 20080416, end: 20090915

REACTIONS (3)
  - HEPATIC FUNCTION ABNORMAL [None]
  - INFUSION RELATED REACTION [None]
  - URTICARIA [None]
